FAERS Safety Report 12499715 (Version 2)
Quarter: 2018Q3

REPORT INFORMATION
  Report Type: Spontaneous
  Country: ES (occurrence: ES)
  Receive Date: 20160627
  Receipt Date: 20180726
  Transmission Date: 20181010
  Serious: Yes (Hospitalization, Other)
  Sender: FDA-Public Use
  Company Number: PHHY2016ES083648

PATIENT
  Age: 49 Year
  Sex: Male

DRUGS (1)
  1. IBUPROFEN. [Suspect]
     Active Substance: IBUPROFEN
     Indication: BACK PAIN
     Dosage: 10 G, QD
     Route: 048

REACTIONS (6)
  - Pulmonary alveolar haemorrhage [Recovered/Resolved]
  - Acute kidney injury [Recovered/Resolved]
  - Diffuse alveolar damage [Recovered/Resolved]
  - Anaemia [Unknown]
  - Drug abuse [Unknown]
  - Extra dose administered [Unknown]
